FAERS Safety Report 7187217-0 (Version None)
Quarter: 2010Q4

REPORT INFORMATION
  Report Type: 
  Country: None (occurrence: None)
  Receive Date: 20101222
  Receipt Date: 20100618
  Transmission Date: 20110411
  Serious: Yes (Other)
  Sender: FDA-Public Use
  Company Number: PHHY2010US24805

PATIENT
  Sex: Male
  Weight: 98 kg

DRUGS (9)
  1. EXJADE [Suspect]
     Indication: HEREDITARY HAEMOCHROMATOSIS
     Dosage: 500 MG, TID
     Route: 048
     Dates: start: 20091104, end: 20091204
  2. EXJADE [Suspect]
     Indication: SERUM FERRITIN INCREASED
     Dosage: 20 MG/KG/BW, QD
     Route: 048
     Dates: start: 20100215, end: 20100308
  3. ATENOLOL [Concomitant]
     Dosage: 100 MG DAILY
     Route: 048
     Dates: start: 20020301
  4. HYDRODIURIL [Concomitant]
     Dosage: 50 MG DAILY
     Dates: start: 20051201
  5. ASPIRIN [Concomitant]
     Dosage: 81 MG DAILY
     Route: 048
  6. NORVASC [Concomitant]
     Dosage: 5 MG DAILY
     Route: 048
  7. DIURETICS [Concomitant]
  8. FUROSEMIDE [Concomitant]
  9. STEROIDS NOS [Concomitant]

REACTIONS (24)
  - ALANINE AMINOTRANSFERASE INCREASED [None]
  - ASPARTATE AMINOTRANSFERASE INCREASED [None]
  - BLOOD ALKALINE PHOSPHATASE INCREASED [None]
  - BLOOD CREATININE INCREASED [None]
  - BLOOD IRON INCREASED [None]
  - BLOOD PRESSURE DECREASED [None]
  - BLOOD UREA INCREASED [None]
  - C-REACTIVE PROTEIN INCREASED [None]
  - CHOLELITHIASIS [None]
  - CHROMATURIA [None]
  - DEHYDRATION [None]
  - DIARRHOEA [None]
  - FATIGUE [None]
  - GLOMERULAR FILTRATION RATE DECREASED [None]
  - HEPATIC STEATOSIS [None]
  - LIVER FUNCTION TEST ABNORMAL [None]
  - NEUTROPHIL COUNT INCREASED [None]
  - PLATELET COUNT DECREASED [None]
  - PROTEINURIA [None]
  - RASH [None]
  - RED BLOOD CELL COUNT DECREASED [None]
  - VITAMIN B12 INCREASED [None]
  - WEIGHT DECREASED [None]
  - WHITE BLOOD CELL COUNT INCREASED [None]
